FAERS Safety Report 8994684 (Version 1)
Quarter: 2012Q4

REPORT INFORMATION
  Report Type: Spontaneous
  Country: US (occurrence: None)
  Receive Date: 20121228
  Receipt Date: 20121228
  Transmission Date: 20130627
  Serious: Yes (Disabling, Other)
  Sender: FDA-Public Use
  Company Number: None

PATIENT
  Age: 67 Year
  Sex: Male
  Weight: 88.45 kg

DRUGS (1)
  1. SILODOSIN [Suspect]
     Indication: PHIMOSIS
     Dates: start: 20121130, end: 20121203

REACTIONS (9)
  - Dry throat [None]
  - Dry mouth [None]
  - Choking [None]
  - Retrograde ejaculation [None]
  - Dizziness [None]
  - Headache [None]
  - Nasal congestion [None]
  - Chills [None]
  - Sleep disorder [None]
